FAERS Safety Report 9612765 (Version 1)
Quarter: 2013Q4

REPORT INFORMATION
  Report Type: Spontaneous
  Country: US (occurrence: None)
  Receive Date: 20131008
  Receipt Date: 20131008
  Transmission Date: 20140711
  Serious: Yes (Life-Threatening, Hospitalization)
  Sender: FDA-Public Use
  Company Number: AUR-APL-2013-08239

PATIENT
  Age: 59 Year
  Sex: Female
  Weight: 69.84 kg

DRUGS (12)
  1. METFORMIN [Suspect]
     Indication: DIABETES MELLITUS
     Route: 048
     Dates: start: 20130612, end: 2013
  2. GLYBURIDE [Suspect]
     Route: 048
     Dates: start: 20130612, end: 2013
  3. SULFAMETHOXAZOLE W/ TRIMETHOPRIM [Suspect]
     Dosage: 800/160 MG, ORAL
     Route: 048
     Dates: start: 20130612, end: 2013
  4. AMLODIPINE (AMLODIPINE) [Concomitant]
  5. HYDROCHLOROTHIAZIDE / LOSARTAN (HYDROCHLOROTHIAZIDE W/ LOSARTAN) [Concomitant]
  6. BABY ASPIRIN (ACETYLSALICYLIC ACID) [Concomitant]
  7. FISH OIL (FISH OIL) [Concomitant]
  8. FEXOFENADINE HYDROCHLORIDE (FEXOFENADINE HYDROCHLORIDE) [Concomitant]
  9. MAGNESIUM (MAGNESIUM) [Concomitant]
  10. CENTRUM SILVER FOR WOMEN 50 + (CENTRUM SILVER ADULTS 50+) [Concomitant]
  11. GEMFIBROZIL (GEMFIBROZIL) [Concomitant]
  12. CELEBREX (CELECOXIB) [Concomitant]

REACTIONS (4)
  - Eating disorder [None]
  - Loss of consciousness [None]
  - Drooling [None]
  - Shock hypoglycaemic [None]
